FAERS Safety Report 4672864-8 (Version None)
Quarter: 2005Q2

REPORT INFORMATION
  Report Type: 
  Country: None (occurrence: None)
  Receive Date: 20050523
  Receipt Date: 20050509
  Transmission Date: 20051028
  Serious: Yes (Death, Hospitalization)
  Sender: FDA-Public Use
  Company Number: 0500055EN0020P

PATIENT
  Age: 9 Year
  Sex: Male
  Weight: 20 kg

DRUGS (6)
  1. ONCASPAR (PEG-L-ASPARGINASE) [Suspect]
     Indication: ACUTE LYMPHOCYTIC LEUKAEMIA
     Dosage: 1975 IU IM
     Route: 030
     Dates: start: 20030529, end: 20030529
  2. VINCRISTINE [Suspect]
     Indication: ACUTE LYMPHOCYTIC LEUKAEMIA
     Dosage: 1.2 MG Q7DAY
     Dates: start: 20030527, end: 20030610
  3. DEXAMETHASONE [Suspect]
     Indication: ACUTE LYMPHOCYTIC LEUKAEMIA
     Dosage: 8 MG QD X 7 DAYS
     Dates: start: 20030527, end: 20030602
  4. DEXAMETHASONE [Suspect]
     Indication: ACUTE LYMPHOCYTIC LEUKAEMIA
     Dosage: 8 MG QD X 7 DAYS
     Dates: start: 20030610, end: 20030616
  5. DOXORUBICIN HCL [Suspect]
     Indication: ACUTE LYMPHOCYTIC LEUKAEMIA
     Dosage: 20 MG IV Q7DAY
     Route: 042
     Dates: start: 20030527, end: 20030610
  6. METHOTREXATE [Suspect]
     Indication: ACUTE LYMPHOCYTIC LEUKAEMIA
     Dosage: 12 MG IT
     Route: 037
     Dates: start: 20030528, end: 20030528

REACTIONS (11)
  - CANDIDA SEPSIS [None]
  - DIARRHOEA [None]
  - EMPYEMA [None]
  - FLUID OVERLOAD [None]
  - HYPOTENSION [None]
  - MULTI-ORGAN FAILURE [None]
  - PNEUMOCOCCAL SEPSIS [None]
  - PSEUDOMONAL SEPSIS [None]
  - RENAL FAILURE [None]
  - SECONDARY IMMUNODEFICIENCY [None]
  - SEPTIC SHOCK [None]
